FAERS Safety Report 4856132-7 (Version None)
Quarter: 2005Q4

REPORT INFORMATION
  Report Type: 
  Country: None (occurrence: None)
  Receive Date: 20051216
  Receipt Date: 20051005
  Transmission Date: 20060501
  Serious: Yes (Hospitalization)
  Sender: FDA-Public Use
  Company Number: AU-MERCK-0510AUS00045

PATIENT
  Age: 53 Year
  Sex: Male
  Weight: 109 kg

DRUGS (6)
  1. VIOXX [Suspect]
     Indication: ARTHRITIS
     Route: 048
     Dates: start: 20020924, end: 20040612
  2. OMEPRAZOLE [Concomitant]
     Route: 065
  3. METHOTREXATE [Concomitant]
     Route: 065
  4. PREDNISOLONE [Concomitant]
     Route: 065
  5. PERINDOPRIL ERBUMINE [Concomitant]
     Route: 065
  6. AMLODIPINE BESYLATE [Concomitant]
     Route: 065

REACTIONS (2)
  - EMOTIONAL DISTRESS [None]
  - MYOCARDIAL INFARCTION [None]
